FAERS Safety Report 20315871 (Version 1)
Quarter: 2022Q1

REPORT INFORMATION
  Report Type: Spontaneous
  Country: US (occurrence: None)
  Receive Date: 20220110
  Receipt Date: 20220110
  Transmission Date: 20220423
  Serious: No
  Sender: FDA-Public Use
  Company Number: US-ROCHE-2905730

PATIENT
  Sex: Female

DRUGS (3)
  1. RITUXAN [Suspect]
     Active Substance: RITUXIMAB
     Indication: Pemphigus
     Route: 042
     Dates: start: 20210521, end: 202106
  2. BRILINTA [Concomitant]
     Active Substance: TICAGRELOR
  3. ASPIRIN [Concomitant]
     Active Substance: ASPIRIN

REACTIONS (4)
  - Memory impairment [Unknown]
  - Increased tendency to bruise [Unknown]
  - Headache [Unknown]
  - Heart rate irregular [Unknown]
